FAERS Safety Report 5859391-7 (Version None)
Quarter: 2008Q3

REPORT INFORMATION
  Report Type: 
  Country: None (occurrence: None)
  Receive Date: 20080826
  Receipt Date: 20080826
  Transmission Date: 20090109
  Serious: No
  Sender: FDA-Public Use
  Company Number: None

PATIENT
  Sex: Female
  Weight: 72.5755 kg

DRUGS (1)
  1. HYDROCODONE BITARTRATE AND HOMATROPINE METHYLBROMIDE [Suspect]
     Indication: COUGH
     Dosage: 1 TEASPONE 4 HOURS PO
     Route: 048
     Dates: start: 20080818, end: 20080823

REACTIONS (2)
  - DRUG EFFECT DECREASED [None]
  - THERAPEUTIC RESPONSE UNEXPECTED WITH DRUG SUBSTITUTION [None]
